FAERS Safety Report 24221384 (Version 1)
Quarter: 2024Q3

REPORT INFORMATION
  Report Type: Report from Study
  Country: CN (occurrence: CN)
  Receive Date: 20240819
  Receipt Date: 20240819
  Transmission Date: 20241017
  Serious: Yes (Death, Other)
  Sender: ROCHE
  Company Number: CN-ROCHE-10000055695

PATIENT

DRUGS (4)
  1. RITUXIMAB [Suspect]
     Active Substance: RITUXIMAB
     Indication: Central nervous system lymphoma
     Route: 042
  2. METHOTREXATE [Suspect]
     Active Substance: METHOTREXATE
     Indication: Central nervous system lymphoma
     Dosage: 3.5 GRAM PER METER SQUARE
     Route: 042
  3. TEMOZOLOMIDE [Suspect]
     Active Substance: TEMOZOLOMIDE
     Indication: Central nervous system lymphoma
     Route: 048
  4. ORELABRUTINIB [Suspect]
     Active Substance: ORELABRUTINIB
     Indication: Central nervous system lymphoma
     Dosage: 4 WEEKS PER CYCLE
     Route: 048

REACTIONS (5)
  - COVID-19 [Fatal]
  - Renal injury [Unknown]
  - Anaemia [Unknown]
  - White blood cell count decreased [Unknown]
  - Platelet count decreased [Unknown]
